FAERS Safety Report 11434378 (Version 2)
Quarter: 2015Q4

REPORT INFORMATION
  Report Type: Spontaneous
  Country: US (occurrence: US)
  Receive Date: 20150831
  Receipt Date: 20151012
  Transmission Date: 20160304
  Serious: No
  Sender: FDA-Public Use
  Company Number: GXBR2015US001798

PATIENT
  Sex: Female

DRUGS (2)
  1. LORAZEPAM ACTAVIS 2MG [Suspect]
     Active Substance: LORAZEPAM
     Indication: PANIC ATTACK
     Dosage: 2 MG, UNK
     Route: 048
     Dates: start: 20150713
  2. LORAZEPAM ACTAVIS 2MG [Suspect]
     Active Substance: LORAZEPAM
     Indication: MENIERE^S DISEASE

REACTIONS (4)
  - Drug withdrawal syndrome [Unknown]
  - Somnolence [Unknown]
  - Dyspepsia [Unknown]
  - Drug ineffective [Unknown]
